FAERS Safety Report 7482704-X (Version None)
Quarter: 2011Q2

REPORT INFORMATION
  Report Type: 
  Country: None (occurrence: None)
  Receive Date: 20110516
  Receipt Date: 20110509
  Transmission Date: 20111010
  Serious: Yes (Hospitalization, Disabling)
  Sender: FDA-Public Use
  Company Number: IE-SANOFI-AVENTIS-2011SA022475

PATIENT
  Age: 62 Year
  Sex: Male

DRUGS (3)
  1. PLAVIX [Suspect]
     Route: 048
     Dates: start: 20060101, end: 20100101
  2. ZANIDIP [Concomitant]
     Route: 048
  3. APROVEL [Concomitant]
     Route: 048

REACTIONS (7)
  - MONOPLEGIA [None]
  - SPINAL HAEMATOMA [None]
  - HAEMORRHAGE [None]
  - NECK PAIN [None]
  - PULMONARY EMBOLISM [None]
  - PAIN IN EXTREMITY [None]
  - MONOPARESIS [None]
